FAERS Safety Report 25042011 (Version 2)
Quarter: 2025Q1

REPORT INFORMATION
  Report Type: Spontaneous
  Country: JP (occurrence: JP)
  Receive Date: 20250305
  Receipt Date: 20250325
  Transmission Date: 20250408
  Serious: Yes (Death, Hospitalization)
  Sender: ELI LILLY AND COMPANY
  Company Number: JP-ELI_LILLY_AND_COMPANY-JP202503001913

PATIENT
  Age: 47 Year
  Sex: Female
  Weight: 64 kg

DRUGS (3)
  1. VERZENIO [Suspect]
     Active Substance: ABEMACICLIB
     Indication: Breast cancer stage II
     Route: 048
     Dates: start: 20231129, end: 20250203
  2. TAMOXIFEN CITRATE [Concomitant]
     Active Substance: TAMOXIFEN CITRATE
     Indication: Breast cancer stage II
     Dates: start: 20230920
  3. GOSERELIN [Concomitant]
     Active Substance: GOSERELIN
     Indication: Breast cancer stage II
     Dates: start: 20230920

REACTIONS (3)
  - Interstitial lung disease [Fatal]
  - Acute respiratory distress syndrome [Fatal]
  - Influenza [Unknown]

NARRATIVE: CASE EVENT DATE: 20250114
